FAERS Safety Report 10003938 (Version 1)
Quarter: 2014Q1

REPORT INFORMATION
  Report Type: Spontaneous
  Country: AU (occurrence: AU)
  Receive Date: 20140312
  Receipt Date: 20140312
  Transmission Date: 20141002
  Serious: Yes (Life-Threatening)
  Sender: FDA-Public Use
  Company Number: AU-009507513-1403AUS002576

PATIENT
  Age: 29 Year
  Sex: Female

DRUGS (2)
  1. ROCURONIUM BROMIDE [Suspect]
     Dosage: 50 MG, ONCE
     Route: 042
     Dates: start: 20131125, end: 20131125
  2. SUCCINYLCHOLINE BROMIDE [Suspect]
     Dosage: 100 MG, ONCE
     Route: 042
     Dates: start: 20131125, end: 20131125

REACTIONS (2)
  - Cardiac arrest [Unknown]
  - Anaphylactic reaction [Unknown]
